FAERS Safety Report 19482588 (Version 3)
Quarter: 2021Q3

REPORT INFORMATION
  Report Type: Spontaneous
  Country: GB (occurrence: GB)
  Receive Date: 20210701
  Receipt Date: 20210716
  Transmission Date: 20211014
  Serious: Yes (Hospitalization, Disabling, Other)
  Sender: FDA-Public Use
  Company Number: GB-SANOFI-AVENTIS-2010SA026366

PATIENT
  Age: 70 Year
  Sex: Male

DRUGS (26)
  1. ACETYLSALICYLIC ACID [Interacting]
     Active Substance: ASPIRIN
     Indication: CHEST PAIN
     Dosage: PATIENT RECEIVED 300MG ON ADMITTANCE AND STARTED ON A 75MG/DAY REGIME
  2. ERYTHROMYCIN. [Interacting]
     Active Substance: ERYTHROMYCIN
     Indication: CHALAZION
  3. ERYTHROMYCIN. [Interacting]
     Active Substance: ERYTHROMYCIN
     Indication: ANTIBIOTIC THERAPY
  4. TEICOPLANIN [Interacting]
     Active Substance: TEICOPLANIN
     Indication: ANTIBIOTIC THERAPY
  5. MEROPENEM. [Interacting]
     Active Substance: MEROPENEM
     Indication: ANTIBIOTIC THERAPY
  6. VITAMIN K [Concomitant]
     Active Substance: PHYTONADIONE
     Indication: COAGULATION TIME PROLONGED
     Dosage: UNK
  7. METRONIDAZOLE. [Interacting]
     Active Substance: METRONIDAZOLE
     Indication: CHALAZION
     Dosage: 400 MG,TID
     Route: 048
  8. TEICOPLANIN [Interacting]
     Active Substance: TEICOPLANIN
     Indication: PERIORBITAL CELLULITIS
  9. TEICOPLANIN [Interacting]
     Active Substance: TEICOPLANIN
     Indication: CHALAZION
     Dosage: 400 MG, QD (PARENTERAL)
     Route: 030
  10. MEROPENEM. [Interacting]
     Active Substance: MEROPENEM
     Indication: CHALAZION
     Dosage: 2 G, 2X PER DAY
     Route: 030
  11. ERYTHROMYCIN. [Interacting]
     Active Substance: ERYTHROMYCIN
     Indication: CELLULITIS
  12. METRONIDAZOLE. [Interacting]
     Active Substance: METRONIDAZOLE
     Indication: PERIORBITAL CELLULITIS
  13. CIPROFLOXACIN. [Interacting]
     Active Substance: CIPROFLOXACIN
     Indication: ANTIBIOTIC THERAPY
  14. CLOPIDOGREL BISULFATE. [Interacting]
     Active Substance: CLOPIDOGREL BISULFATE
     Indication: ANTIPLATELET THERAPY
     Dosage: 75 MG, QD
     Route: 048
  15. TEICOPLANIN [Interacting]
     Active Substance: TEICOPLANIN
     Indication: CELLULITIS
  16. MEROPENEM. [Interacting]
     Active Substance: MEROPENEM
     Indication: PERIORBITAL CELLULITIS
     Dosage: 2 G, 2X PER DAY
     Route: 042
  17. MEROPENEM. [Interacting]
     Active Substance: MEROPENEM
     Indication: CELLULITIS
  18. ACETYLSALICYLIC ACID [Interacting]
     Active Substance: ASPIRIN
     Indication: ANTIPLATELET THERAPY
     Dosage: PATIENT RECEIVED 300MG ON ADMITTANCE AND STARTED ON A 75MG/DAY REGIME
  19. VITAMIN K [Concomitant]
     Active Substance: PHYTONADIONE
     Indication: PRODUCT USED FOR UNKNOWN INDICATION
  20. WARFARIN SODIUM. [Interacting]
     Active Substance: WARFARIN SODIUM
     Indication: PULMONARY EMBOLISM
     Dosage: NI
     Route: 048
  21. WARFARIN SODIUM. [Interacting]
     Active Substance: WARFARIN SODIUM
     Indication: FACTOR V DEFICIENCY
  22. CIPROFLOXACIN. [Interacting]
     Active Substance: CIPROFLOXACIN
     Indication: CHALAZION
     Dosage: 750 MG, 2X PER DAY
     Route: 048
  23. ERYTHROMYCIN. [Interacting]
     Active Substance: ERYTHROMYCIN
     Indication: PERIORBITAL CELLULITIS
     Dosage: 250 MG, 4X PER DAY
     Route: 048
  24. METRONIDAZOLE. [Interacting]
     Active Substance: METRONIDAZOLE
     Indication: ANTIBIOTIC THERAPY
  25. CIPROFLOXACIN. [Interacting]
     Active Substance: CIPROFLOXACIN
     Indication: PERIORBITAL CELLULITIS
  26. CLOPIDOGREL BISULFATE. [Suspect]
     Active Substance: CLOPIDOGREL BISULFATE
     Indication: CHEST PAIN
     Dosage: 300 MG, QD
     Route: 048

REACTIONS (12)
  - Hyphaema [Recovered/Resolved with Sequelae]
  - Intraocular pressure increased [Not Recovered/Not Resolved]
  - Nausea [Unknown]
  - International normalised ratio increased [Recovered/Resolved]
  - Visual impairment [Not Recovered/Not Resolved]
  - Drug interaction [Recovered/Resolved]
  - Visual acuity reduced [Recovered/Resolved with Sequelae]
  - Headache [Not Recovered/Not Resolved]
  - Pyrexia [Unknown]
  - Eye pain [Recovered/Resolved with Sequelae]
  - Decreased appetite [Unknown]
  - Coagulation time prolonged [Recovered/Resolved]
